FAERS Safety Report 5792739-0 (Version None)
Quarter: 2008Q2

REPORT INFORMATION
  Report Type: 
  Country: None (occurrence: None)
  Receive Date: 20080624
  Receipt Date: 20080610
  Transmission Date: 20081010
  Serious: Yes (Death)
  Sender: FDA-Public Use
  Company Number: 2008AL005298

PATIENT
  Age: 68 Year
  Sex: Female
  Weight: 43.9989 kg

DRUGS (1)
  1. DIGOXIN [Suspect]
     Indication: ARRHYTHMIA
     Dates: start: 20071101, end: 20071201

REACTIONS (1)
  - DEATH [None]
